FAERS Safety Report 6231353-X (Version None)
Quarter: 2009Q2

REPORT INFORMATION
  Report Type: 
  Country: None (occurrence: None)
  Receive Date: 20090616
  Receipt Date: 20090603
  Transmission Date: 20091009
  Serious: Yes (Disabling)
  Sender: FDA-Public Use
  Company Number: US-ELI_LILLY_AND_COMPANY-US200906001222

PATIENT
  Sex: Male

DRUGS (1)
  1. CYMBALTA [Suspect]
     Dosage: 120 MG, DAILY (1/D)
     Dates: start: 20050101

REACTIONS (2)
  - LOSS OF EMPLOYMENT [None]
  - SURGERY [None]
